FAERS Safety Report 9454285 (Version 1)
Quarter: 2013Q3

REPORT INFORMATION
  Report Type: Spontaneous
  Country: FR (occurrence: NL)
  Receive Date: 20130812
  Receipt Date: 20130812
  Transmission Date: 20140515
  Serious: Yes (Other)
  Sender: FDA-Public Use
  Company Number: NL-PFIZER INC-2013230169

PATIENT
  Age: 47 Year
  Sex: Male

DRUGS (6)
  1. FLUDARABINE PHOSPHATE [Suspect]
     Indication: CHRONIC LYMPHOCYTIC LEUKAEMIA
     Dosage: 25 MG/M2, UNK (25 MG/M2 X 5, TOTAL OF 975 MG)
     Dates: start: 1993
  2. ADRIAMYCIN [Suspect]
     Indication: NON-HODGKIN^S LYMPHOMA
     Dosage: UNK
  3. VINCRISTINE SULFATE [Suspect]
     Indication: NON-HODGKIN^S LYMPHOMA
     Dosage: UNK
  4. CYCLOPHOSPHAMIDE [Suspect]
     Indication: NON-HODGKIN^S LYMPHOMA
     Dosage: UNK
  5. PREDNISONE [Suspect]
     Indication: CHRONIC LYMPHOCYTIC LEUKAEMIA
     Dosage: UNK
     Dates: start: 1993
  6. PREDNISONE [Suspect]
     Indication: NON-HODGKIN^S LYMPHOMA

REACTIONS (2)
  - Meningitis cryptococcal [Recovering/Resolving]
  - Immunosuppression [Unknown]
